FAERS Safety Report 10248089 (Version 1)
Quarter: 2014Q2

REPORT INFORMATION
  Report Type: Spontaneous
  Country: ZA (occurrence: ZA)
  Receive Date: 20140619
  Receipt Date: 20140619
  Transmission Date: 20141212
  Serious: Yes (Death)
  Sender: FDA-Public Use
  Company Number: ZA-009507513-1406ZAF007965

PATIENT
  Age: 79 Year
  Sex: Male

DRUGS (2)
  1. CANCIDAS 50MG [Suspect]
     Dosage: UNK
     Dates: start: 20140606
  2. CANCIDAS 70MG [Suspect]
     Dosage: UNK
     Dates: start: 201406

REACTIONS (1)
  - Death [Fatal]
